FAERS Safety Report 9310717 (Version 1)
Quarter: 2013Q2

REPORT INFORMATION
  Report Type: Spontaneous
  Country: US (occurrence: US)
  Receive Date: 20130527
  Receipt Date: 20130527
  Transmission Date: 20140414
  Serious: No
  Sender: FDA-Public Use
  Company Number: US-009507513-1305USA006772

PATIENT
  Age: 69 Year
  Sex: Female

DRUGS (2)
  1. TEMODAR [Suspect]
     Indication: BRAIN NEOPLASM
     Dosage: UNK
     Route: 048
     Dates: start: 201302, end: 2013
  2. TEMODAR [Suspect]
     Dosage: HIGH DOSE REGIMEN
     Route: 048
     Dates: start: 20130415, end: 20130420

REACTIONS (1)
  - Platelet count decreased [Unknown]
